FAERS Safety Report 25503972 (Version 2)
Quarter: 2025Q3

REPORT INFORMATION
  Report Type: Spontaneous
  Country: EU (occurrence: EU)
  Receive Date: 20250702
  Receipt Date: 20250813
  Transmission Date: 20251020
  Serious: Yes (Hospitalization, Other)
  Sender: RANBAXY
  Company Number: EU-SUN PHARMACEUTICAL INDUSTRIES LTD-2025RR-514267

PATIENT
  Age: 31 Year
  Sex: Female

DRUGS (8)
  1. LORAZEPAM [Suspect]
     Active Substance: LORAZEPAM
     Indication: Drug abuse
     Route: 048
     Dates: start: 20250301, end: 202503
  2. AZITHROMYCIN [Suspect]
     Active Substance: AZITHROMYCIN
     Indication: Drug abuse
     Route: 048
     Dates: start: 20250301, end: 20250301
  3. KETOROLAC TROMETHAMINE [Suspect]
     Active Substance: KETOROLAC TROMETHAMINE
     Indication: Drug abuse
     Route: 048
     Dates: start: 20250301, end: 20250301
  4. DIHYDROCODEINE [Suspect]
     Active Substance: DIHYDROCODEINE
     Indication: Drug abuse
     Route: 048
     Dates: start: 20250301, end: 20250301
  5. BROMAZEPAM [Suspect]
     Active Substance: BROMAZEPAM
     Indication: Drug abuse
     Route: 048
  6. LYRICA [Suspect]
     Active Substance: PREGABALIN
     Indication: Drug abuse
     Route: 048
     Dates: start: 20250301, end: 20250301
  7. VENLAFAXINE [Suspect]
     Active Substance: VENLAFAXINE HYDROCHLORIDE
     Indication: Drug abuse
     Route: 048
     Dates: start: 20250301, end: 20250301
  8. ACETAMINOPHEN [Suspect]
     Active Substance: ACETAMINOPHEN
     Indication: Drug abuse
     Route: 048
     Dates: start: 20250301, end: 20250301

REACTIONS (4)
  - Drug abuse [Recovering/Resolving]
  - Cognitive disorder [Recovering/Resolving]
  - Mydriasis [Recovering/Resolving]
  - Suicide attempt [Recovering/Resolving]

NARRATIVE: CASE EVENT DATE: 20250302
